FAERS Safety Report 21444977 (Version 1)
Quarter: 2022Q4

REPORT INFORMATION
  Report Type: Spontaneous
  Country: US (occurrence: None)
  Receive Date: 20221011
  Receipt Date: 20221011
  Transmission Date: 20230113
  Serious: Yes (Other)
  Sender: FDA-Public Use
  Company Number: None

PATIENT
  Age: 71 Year
  Sex: Female
  Weight: 64 kg

DRUGS (1)
  1. SUTIMLIMAB-JOME [Suspect]
     Active Substance: SUTIMLIMAB-JOME
     Indication: Cold type haemolytic anaemia
     Dosage: 6.5 G GRAM  EVERY 2 WEEKS INTRAVENOUS
     Route: 042
     Dates: start: 20220623, end: 20220804

REACTIONS (4)
  - Pruritus [None]
  - Hypoaesthesia [None]
  - Hypoaesthesia oral [None]
  - Oropharyngeal pain [None]

NARRATIVE: CASE EVENT DATE: 20220804
